FAERS Safety Report 6062523-1 (Version None)
Quarter: 2009Q1

REPORT INFORMATION
  Report Type: 
  Country: None (occurrence: None)
  Receive Date: 20090203
  Receipt Date: 20090121
  Transmission Date: 20090719
  Serious: Yes (Death)
  Sender: FDA-Public Use
  Company Number: US-JNJFOC-20090105875

PATIENT
  Sex: Male
  Weight: 78.93 kg

DRUGS (5)
  1. FENTANYL-75 [Suspect]
     Indication: DRUG USE FOR UNKNOWN INDICATION
     Route: 065
  2. TRAMADOL HCL [Suspect]
     Indication: DRUG USE FOR UNKNOWN INDICATION
     Route: 065
  3. SERTRALINE [Suspect]
     Indication: DRUG USE FOR UNKNOWN INDICATION
     Route: 065
  4. MOTRIN [Concomitant]
     Route: 065
  5. OXYCODONE HCL [Concomitant]
     Route: 065

REACTIONS (5)
  - ACCIDENTAL DEATH [None]
  - BRONCHOPNEUMONIA [None]
  - DRUG TOXICITY [None]
  - HEPATIC STEATOSIS [None]
  - UNRESPONSIVE TO STIMULI [None]
